FAERS Safety Report 23173141 (Version 3)
Quarter: 2024Q2

REPORT INFORMATION
  Report Type: Report from Study
  Country: GB (occurrence: GB)
  Receive Date: 20231111
  Receipt Date: 20240410
  Transmission Date: 20240716
  Serious: Yes (Other)
  Sender: FDA-Public Use
  Company Number: GB-TEVA-2023-GB-2943786

PATIENT
  Sex: Female

DRUGS (1)
  1. AJOVY [Suspect]
     Active Substance: FREMANEZUMAB-VFRM
     Indication: Migraine
     Dosage: DOSAGE TEXT: 225MG/1.5ML
     Route: 065

REACTIONS (3)
  - Dyspnoea [Unknown]
  - Cellulitis [Unknown]
  - Chest pain [Unknown]
